FAERS Safety Report 7656058-X (Version None)
Quarter: 2011Q3

REPORT INFORMATION
  Report Type: 
  Country: None (occurrence: None)
  Receive Date: 20110804
  Receipt Date: 20110722
  Transmission Date: 20111222
  Serious: Yes (Other)
  Sender: FDA-Public Use
  Company Number: CA-ELI_LILLY_AND_COMPANY-CA201107006144

PATIENT
  Sex: Male

DRUGS (20)
  1. ZYPREXA ZYDIS [Suspect]
     Dosage: 10 MG, QD
  2. SEROQUEL [Concomitant]
  3. DOXAZOSIN MESYLATE [Concomitant]
  4. LAMOTRIGINE [Concomitant]
  5. ZYPREXA ZYDIS [Suspect]
     Dosage: 2.5 MG, QD
  6. ZYPREXA [Suspect]
     Dosage: 10 MG, QD
  7. ZYPREXA ZYDIS [Suspect]
     Dosage: 5 MG, QD
  8. ZYPREXA ZYDIS [Suspect]
     Dosage: 7.5 MG, QD
  9. TRAZODONE HYDROCHLORIDE [Concomitant]
  10. CELEXA [Concomitant]
  11. TOPAMAX [Concomitant]
  12. ZYPREXA [Suspect]
     Dosage: 5 MG, QD
  13. ATIVAN [Concomitant]
  14. LOXAPINE HCL [Concomitant]
  15. WELLBUTRIN [Concomitant]
  16. NOZINAN [Concomitant]
  17. FLUOXETINE [Concomitant]
  18. LEVODOPA [Concomitant]
  19. DEXEDRINE [Concomitant]
  20. REMERON [Concomitant]

REACTIONS (9)
  - HYPOAESTHESIA [None]
  - DIABETES MELLITUS [None]
  - SLEEP APNOEA SYNDROME [None]
  - DYSLIPIDAEMIA [None]
  - SYNCOPE [None]
  - RESTLESS LEGS SYNDROME [None]
  - CATARACT [None]
  - WEIGHT INCREASED [None]
  - METABOLIC SYNDROME [None]
